FAERS Safety Report 13711296 (Version 2)
Quarter: 2017Q3

REPORT INFORMATION
  Report Type: Report from Study
  Country: US (occurrence: US)
  Receive Date: 20170703
  Receipt Date: 20170918
  Transmission Date: 20171127
  Serious: Yes (Other)
  Sender: FDA-Public Use
  Company Number: US-GILEAD-2017-0280748

PATIENT
  Age: 66 Year
  Sex: Female

DRUGS (1)
  1. RANOLAZINE. [Suspect]
     Active Substance: RANOLAZINE
     Indication: ANGINA PECTORIS
     Dosage: 1000 MG, UNK
     Route: 048

REACTIONS (11)
  - Irritable bowel syndrome [Unknown]
  - Glaucoma [Not Recovered/Not Resolved]
  - Facial paralysis [Not Recovered/Not Resolved]
  - Diarrhoea [Unknown]
  - Cerebrovascular accident [Unknown]
  - Abdominal pain upper [Unknown]
  - Confusional state [Unknown]
  - Drug dose omission [Not Recovered/Not Resolved]
  - Blindness unilateral [Not Recovered/Not Resolved]
  - Arthritis [Not Recovered/Not Resolved]
  - Vomiting [Unknown]

NARRATIVE: CASE EVENT DATE: 20170623
